FAERS Safety Report 8048559-X (Version None)
Quarter: 2012Q1

REPORT INFORMATION
  Report Type: 
  Country: None (occurrence: None)
  Receive Date: 20120117
  Receipt Date: 20120109
  Transmission Date: 20120608
  Serious: Yes (Other)
  Sender: FDA-Public Use
  Company Number: US-BAYER-2011-092471

PATIENT
  Sex: Female

DRUGS (1)
  1. YAZ [Suspect]
     Indication: CONTRACEPTION
     Dosage: UNK
     Dates: start: 20070817, end: 20100201

REACTIONS (12)
  - MALAISE [None]
  - WEIGHT INCREASED [None]
  - ANXIETY [None]
  - EMOTIONAL DISTRESS [None]
  - ANHEDONIA [None]
  - GALLBLADDER DISORDER [None]
  - INFECTION [None]
  - PAIN [None]
  - INJURY [None]
  - RECTAL HAEMORRHAGE [None]
  - GENERAL PHYSICAL HEALTH DETERIORATION [None]
  - DYSPEPSIA [None]
